FAERS Safety Report 9145404 (Version 2)
Quarter: 2013Q1

REPORT INFORMATION
  Report Type: Spontaneous
  Country: JP (occurrence: JP)
  Receive Date: 20130307
  Receipt Date: 20130320
  Transmission Date: 20140127
  Serious: Yes (Life-Threatening, Hospitalization)
  Sender: FDA-Public Use
  Company Number: JP-JNJFOC-20130215651

PATIENT
  Age: 75 Year
  Sex: Male
  Weight: 74 kg

DRUGS (11)
  1. XARELTO [Suspect]
     Indication: THROMBOSIS PROPHYLAXIS
     Route: 048
     Dates: start: 20121226, end: 20130220
  2. AMARYL [Concomitant]
     Route: 048
     Dates: start: 20120613
  3. HERBESSER [Concomitant]
     Route: 048
     Dates: start: 20071105
  4. NESINA [Concomitant]
     Route: 048
     Dates: start: 20120613
  5. MUCOSOLVAN [Concomitant]
     Route: 048
     Dates: start: 20120613
  6. URSO [Concomitant]
     Route: 048
     Dates: start: 20120613
  7. LANIRAPID [Concomitant]
     Route: 048
     Dates: start: 20071105
  8. SIGMART [Concomitant]
     Route: 048
     Dates: start: 20071105
  9. MUCODYNE [Concomitant]
     Route: 048
     Dates: start: 20120613
  10. ANTUP [Concomitant]
     Route: 062
     Dates: start: 20071105
  11. SPIRIVA [Concomitant]
     Dosage: 2 PUFFS INHALATION POWDER, RESPIRATORY INHALATION
     Route: 055
     Dates: start: 20130206

REACTIONS (2)
  - Lower gastrointestinal haemorrhage [Recovered/Resolved]
  - Cardiac failure acute [Recovered/Resolved]
